FAERS Safety Report 18973141 (Version 2)
Quarter: 2022Q1

REPORT INFORMATION
  Report Type: Spontaneous
  Country: US (occurrence: US)
  Receive Date: 20210305
  Receipt Date: 20220128
  Transmission Date: 20220423
  Serious: Yes (Other)
  Sender: FDA-Public Use
  Company Number: US-CELGENE-USA-20210300179

PATIENT
  Sex: Female

DRUGS (17)
  1. ABRAXANE [Suspect]
     Active Substance: PACLITAXEL
     Indication: Product used for unknown indication
     Route: 041
     Dates: start: 20200120, end: 20200707
  2. VITAMIN D [Concomitant]
     Active Substance: VITAMIN D NOS
     Indication: Osteopenia
     Dosage: 5000 UNITS
     Route: 048
     Dates: start: 20170801
  3. FLUOXETINE [Concomitant]
     Active Substance: FLUOXETINE HYDROCHLORIDE
     Indication: Menopause
     Dosage: 10 MILLIGRAM
     Route: 048
     Dates: start: 20030501
  4. TRAMADOL [Concomitant]
     Active Substance: TRAMADOL
     Indication: Abdominal pain
     Dosage: 25 MILLIGRAM
     Route: 048
     Dates: start: 20200103
  5. DIETARY SUPPLEMENT [Concomitant]
     Active Substance: DIETARY SUPPLEMENT
     Indication: Constipation
     Dosage: 2 TEASPOONS
     Route: 048
     Dates: start: 20191227
  6. Herbal tea [Concomitant]
     Indication: Constipation
     Dosage: 1 TEA BAG
     Route: 048
     Dates: start: 20191215
  7. TUMS SMOOTHIES [Concomitant]
     Active Substance: CALCIUM CARBONATE
     Indication: Gastrooesophageal reflux disease
     Route: 048
     Dates: start: 20200123
  8. ZOFRAN [Concomitant]
     Active Substance: ONDANSETRON HYDROCHLORIDE
     Indication: Prophylaxis
     Route: 048
     Dates: start: 20200129
  9. GAS-X [Concomitant]
     Active Substance: DIMETHICONE
     Indication: Abdominal distension
     Route: 048
     Dates: start: 20200222
  10. TYLENOL [Concomitant]
     Active Substance: ACETAMINOPHEN
     Indication: Headache
     Route: 048
     Dates: start: 20200228
  11. BENADRYL [Concomitant]
     Active Substance: DIPHENHYDRAMINE HYDROCHLORIDE
     Indication: Prophylaxis
     Route: 048
     Dates: start: 20200416
  12. MOMETASONE FUROATE [Concomitant]
     Active Substance: MOMETASONE FUROATE
     Indication: Paraesthesia
     Dosage: .1 PERCENT
     Route: 061
     Dates: start: 20200429
  13. NEURONTIN [Concomitant]
     Active Substance: GABAPENTIN
     Indication: Paraesthesia
     Dosage: 1200 MILLIGRAM
     Route: 048
     Dates: start: 20200506
  14. ROBAXIN [Concomitant]
     Active Substance: METHOCARBAMOL
     Indication: Muscle spasms
     Dosage: 500 MILLIGRAM
     Route: 048
     Dates: start: 20200514
  15. ALEVE [Concomitant]
     Active Substance: NAPROXEN SODIUM
     Indication: Musculoskeletal stiffness
     Dosage: 500 MILLIGRAM
     Route: 048
     Dates: start: 20200522
  16. PROTONIX [Concomitant]
     Active Substance: PANTOPRAZOLE SODIUM
     Indication: Gastrooesophageal reflux disease
     Dosage: 40 MILLIGRAM
     Route: 048
     Dates: start: 20200527
  17. PACLITAXEL [Concomitant]
     Active Substance: PACLITAXEL
     Indication: Gastrooesophageal reflux disease
     Dosage: 200 MILLIGRAM
     Route: 048
     Dates: start: 20200120, end: 20200707

REACTIONS (1)
  - Retinal pigment epitheliopathy [Not Recovered/Not Resolved]
